FAERS Safety Report 5413028-X (Version None)
Quarter: 2007Q3

REPORT INFORMATION
  Report Type: 
  Country: None (occurrence: None)
  Receive Date: 20070803
  Receipt Date: 20070615
  Transmission Date: 20080115
  Serious: Yes (Hospitalization, Other)
  Sender: FDA-Public Use
  Company Number: 200710849BVD

PATIENT
  Age: 19 Year
  Sex: Male
  Weight: 73 kg

DRUGS (1)
  1. KOGENATE [Suspect]
     Indication: SINUS OPERATION
     Dosage: SEE IMAGE

REACTIONS (3)
  - FACTOR VIII INHIBITION [None]
  - HAEMATOMA [None]
  - IMPAIRED HEALING [None]
